FAERS Safety Report 18009218 (Version 1)
Quarter: 2020Q3

REPORT INFORMATION
  Report Type: Spontaneous
  Country: US (occurrence: US)
  Receive Date: 20200710
  Receipt Date: 20200710
  Transmission Date: 20201103
  Serious: Yes (Other)
  Sender: FDA-Public Use
  Company Number: US-SAOL THERAPEUTICS-2020SAO00129

PATIENT
  Age: 62 Year
  Sex: Female

DRUGS (2)
  1. LIORESAL [Suspect]
     Active Substance: BACLOFEN
     Dosage: 100 ?G, \DAY
     Route: 037
     Dates: start: 20200507
  2. LIORESAL [Suspect]
     Active Substance: BACLOFEN
     Dosage: 205 ?G, \DAY
     Route: 037
     Dates: end: 20200507

REACTIONS (3)
  - Device physical property issue [Recovered/Resolved]
  - Device dislocation [Recovered/Resolved]
  - Drug withdrawal syndrome [Recovered/Resolved]

NARRATIVE: CASE EVENT DATE: 20200223
